FAERS Safety Report 10019640 (Version 1)
Quarter: 2014Q1

REPORT INFORMATION
  Report Type: Spontaneous
  Country: DE (occurrence: DE)
  Receive Date: 20140318
  Receipt Date: 20140318
  Transmission Date: 20141002
  Serious: Yes (Hospitalization)
  Sender: FDA-Public Use
  Company Number: DE-WATSON-2014-04844

PATIENT
  Age: 67 Year
  Sex: Male
  Weight: 75 kg

DRUGS (3)
  1. RISPERIDONE (UNKNOWN) [Suspect]
     Indication: SCHIZOPHRENIA, PARANOID TYPE
     Dosage: 2 MG, DAILY
     Route: 048
     Dates: start: 20131217, end: 20140204
  2. RISPERIDONE [Concomitant]
     Indication: SCHIZOPHRENIA, PARANOID TYPE
     Dosage: 0.5 MG, DAILY
     Route: 048
     Dates: start: 20131213
  3. RISPERIDONE [Concomitant]
     Dosage: 1 MG, DAILY
     Route: 048
     Dates: start: 20131215

REACTIONS (1)
  - Neuroleptic malignant syndrome [Recovering/Resolving]
